FAERS Safety Report 15501057 (Version 1)
Quarter: 2018Q4

REPORT INFORMATION
  Report Type: Other
  Country: CA (occurrence: CA)
  Receive Date: 20181015
  Receipt Date: 20181015
  Transmission Date: 20190205
  Serious: Yes (Hospitalization, Other)
  Sender: FDA-Public Use
  Company Number: CA-PFIZER INC-2018409822

PATIENT
  Age: 55 Year
  Sex: Female

DRUGS (17)
  1. DESMOPRESSIN [Interacting]
     Active Substance: DESMOPRESSIN
     Indication: PRODUCT USED FOR UNKNOWN INDICATION
     Dosage: UNK
     Route: 045
  2. RABEPRAZOLE [Concomitant]
     Active Substance: RABEPRAZOLE
     Dosage: UNK
  3. PREDNISONE. [Concomitant]
     Active Substance: PREDNISONE
     Dosage: UNK
  4. SALBUTAMOL [Concomitant]
     Active Substance: ALBUTEROL
     Dosage: UNK
  5. HYDROMORPHONE HCL [Interacting]
     Active Substance: HYDROMORPHONE HYDROCHLORIDE
     Indication: PAIN
     Dosage: UNK
     Route: 065
  6. DESMOPRESSIN [Interacting]
     Active Substance: DESMOPRESSIN
     Dosage: 0.4 MG, 2X/DAY
     Route: 048
  7. SYMBICORT [Concomitant]
     Active Substance: BUDESONIDE\FORMOTEROL FUMARATE DIHYDRATE
     Dosage: UNK
  8. VASOPRESSIN INJECTION [Concomitant]
     Active Substance: VASOPRESSIN
     Dosage: UNK
  9. DESMOPRESSIN [Interacting]
     Active Substance: DESMOPRESSIN
     Dosage: 0.6 MG, 2X/DAY
     Route: 048
  10. DICLOFENAC/MISOPROSTOL [Concomitant]
     Active Substance: DICLOFENAC SODIUM\MISOPROSTOL
     Dosage: UNK
  11. DOMPERIDONE [Concomitant]
     Active Substance: DOMPERIDONE
     Dosage: UNK
  12. HYDROCORTISONE. [Concomitant]
     Active Substance: HYDROCORTISONE
     Dosage: UNK
  13. LEVOTHYROXINE. [Concomitant]
     Active Substance: LEVOTHYROXINE
     Dosage: UNK
  14. HYDROMORPHONE HYDROCHLORIDE. [Suspect]
     Active Substance: HYDROMORPHONE HYDROCHLORIDE
     Indication: PAIN
     Dosage: UNK
     Route: 058
  15. IPRATROPIUM [Concomitant]
     Active Substance: IPRATROPIUM
     Dosage: UNK
  16. DESMOPRESSIN [Interacting]
     Active Substance: DESMOPRESSIN
     Dosage: 10 UG, EVERY 4 HOURS
     Route: 045
  17. DESMOPRESSIN [Interacting]
     Active Substance: DESMOPRESSIN
     Dosage: 0.8 MG, 3X/DAY
     Route: 048

REACTIONS (2)
  - Hyponatraemia [Unknown]
  - Drug interaction [Unknown]
